FAERS Safety Report 16652912 (Version 7)
Quarter: 2021Q1

REPORT INFORMATION
  Report Type: Spontaneous
  Country: IL (occurrence: IL)
  Receive Date: 20190731
  Receipt Date: 20210204
  Transmission Date: 20210419
  Serious: Yes (Life-Threatening, Hospitalization, Other)
  Sender: FDA-Public Use
  Company Number: IL-AMGEN-ISRSP2019119465

PATIENT
  Age: 58 Year
  Sex: Male

DRUGS (28)
  1. RECLAST [Suspect]
     Active Substance: ZOLEDRONIC ACID
     Indication: PRODUCT USED FOR UNKNOWN INDICATION
     Dosage: UNK
     Route: 065
  2. ROKACET PLUS [Concomitant]
  3. XATRAL [ALFUZOSIN HYDROCHLORIDE] [Concomitant]
     Active Substance: ALFUZOSIN
     Dosage: 10 MILLIGRAM
  4. AFINITOR [Concomitant]
     Active Substance: EVEROLIMUS
  5. INTERFERON [Concomitant]
     Active Substance: INTERFERON
  6. AMLODIPINE [Concomitant]
     Active Substance: AMLODIPINE BESYLATE
  7. LENVIMA [Concomitant]
     Active Substance: LENVATINIB
     Dosage: 8 MILLIGRAM, QD
  8. BUTRANS [Concomitant]
     Active Substance: BUPRENORPHINE
  9. GLUCOMINE [METFORMIN HYDROCHLORIDE] [Concomitant]
  10. SOMATULIN [Concomitant]
     Active Substance: LANREOTIDE ACETATE
  11. XGEVA [Suspect]
     Active Substance: DENOSUMAB
     Indication: PRODUCT USED FOR UNKNOWN INDICATION
     Dosage: 120 MILLIGRAM (1.7ML), QMO
     Route: 065
     Dates: end: 2020
  12. GLUCOMIN [Concomitant]
     Active Substance: METFORMIN HYDROCHLORIDE
     Dosage: 850 MILLIGRAM
  13. OTRIVIN [Concomitant]
     Active Substance: XYLOMETAZOLINE
  14. ENSURE [NUTRIENTS NOS] [Concomitant]
  15. IMOVANE [Concomitant]
     Active Substance: ZOPICLONE
  16. NOCTURNO [Concomitant]
     Dosage: 7.5 UNK
  17. TRIBEMIN [Concomitant]
     Active Substance: CYANOCOBALAMIN\PYRIDOXINE HYDROCHLORIDE\THIAMINE
     Dosage: UNK
  18. EUTHYROX [Concomitant]
     Active Substance: LEVOTHYROXINE SODIUM
  19. XERMELO [Concomitant]
     Active Substance: TELOTRISTAT ETHYL
     Dosage: 250 MILLIGRAM, TID
  20. PROLOL [METOPROLOL SUCCINATE] [Concomitant]
  21. PROLOL [PROPRANOLOL HYDROCHLORIDE] [Concomitant]
     Dosage: 10 MILLIGRAM
  22. CREON [Concomitant]
     Active Substance: PANCRELIPASE AMYLASE\PANCRELIPASE LIPASE\PANCRELIPASE PROTEASE
     Dosage: 25000 UNK
  23. MULTIVITAMIN [ASCORBIC ACID;BIOTIN;CALCIUM PANTOTHENATE;CYANOCOBALAMIN [Concomitant]
     Active Substance: VITAMINS
  24. SOMATULINE [LANREOTIDE] [Concomitant]
     Active Substance: LANREOTIDE
     Indication: NEUROENDOCRINE TUMOUR
     Dosage: 240 MILLIGRAM, Q4WK
     Dates: start: 20110816
  25. ACERIL [RAMIPRIL] [Concomitant]
  26. XATRAL [Concomitant]
     Active Substance: ALFUZOSIN
  27. OPTALGIN [Concomitant]
     Active Substance: METAMIZOLE
  28. VITAMINS NOS [Concomitant]
     Active Substance: VITAMINS

REACTIONS (15)
  - Neuroendocrine carcinoma metastatic [Unknown]
  - Platelet count decreased [Not Recovered/Not Resolved]
  - Pleural effusion [Not Recovered/Not Resolved]
  - Constipation [Recovered/Resolved]
  - Faecaloma [Recovered/Resolved]
  - Tooth extraction [Unknown]
  - Blood pressure decreased [Not Recovered/Not Resolved]
  - Oedema [Not Recovered/Not Resolved]
  - Infection [Not Recovered/Not Resolved]
  - Anaemia [Recovering/Resolving]
  - Pyrexia [Not Recovered/Not Resolved]
  - Back pain [Not Recovered/Not Resolved]
  - Osteonecrosis of jaw [Not Recovered/Not Resolved]
  - Arthralgia [Not Recovered/Not Resolved]
  - Urethral stent insertion [Unknown]

NARRATIVE: CASE EVENT DATE: 202005
